FAERS Safety Report 5035769-9 (Version None)
Quarter: 2006Q2

REPORT INFORMATION
  Report Type: 
  Country: None (occurrence: None)
  Receive Date: 20060622
  Receipt Date: 20060616
  Transmission Date: 20061013
  Serious: Yes (Other)
  Sender: FDA-Public Use
  Company Number: 200612125BCC

PATIENT
  Age: 78 Year
  Sex: Female
  Weight: 64.8644 kg

DRUGS (1)
  1. MILK OF MAGNESIA TAB [Suspect]
     Indication: CONSTIPATION
     Dosage: ORAL
     Route: 048

REACTIONS (2)
  - DIABETES MELLITUS [None]
  - HYPERTENSION [None]
